FAERS Safety Report 17959173 (Version 2)
Quarter: 2020Q3

REPORT INFORMATION
  Report Type: Spontaneous
  Country: ZA (occurrence: ZA)
  Receive Date: 20200629
  Receipt Date: 20200708
  Transmission Date: 20201103
  Serious: Yes (Other)
  Sender: FDA-Public Use
  Company Number: ZA-GLAXOSMITHKLINE-ZA2020GSK110480

PATIENT

DRUGS (1)
  1. GRANDPA [Suspect]
     Active Substance: ACETAMINOPHEN\ASPIRIN\CAFFEINE
     Indication: HEADACHE
     Dosage: UNK

REACTIONS (5)
  - Ulcer [Recovering/Resolving]
  - Drug dependence [Unknown]
  - Illness [Unknown]
  - Anxiety [Unknown]
  - Feeding disorder [Unknown]
